FAERS Safety Report 4958029-0 (Version None)
Quarter: 2006Q1

REPORT INFORMATION
  Report Type: 
  Country: None (occurrence: None)
  Receive Date: 20060330
  Receipt Date: 20050810
  Transmission Date: 20060701
  Serious: Yes (Hospitalization)
  Sender: FDA-Public Use
  Company Number: US-MERCK-0508USA01981

PATIENT
  Age: 42 Year
  Sex: Female
  Weight: 95 kg

DRUGS (9)
  1. VIOXX [Suspect]
     Indication: LIMB INJURY
     Route: 048
     Dates: start: 20020901, end: 20040930
  2. BEXTRA [Suspect]
     Route: 048
  3. ZOLOFT [Concomitant]
     Route: 065
  4. NIFEDIPINE [Concomitant]
     Route: 065
  5. LOVASTATIN [Concomitant]
     Route: 065
  6. ECOTRIN [Concomitant]
     Route: 065
  7. PROZAC [Concomitant]
     Route: 065
  8. LEXAPRO [Concomitant]
     Route: 065
  9. MOTRIN [Concomitant]
     Route: 065

REACTIONS (3)
  - ANXIETY [None]
  - HYPERTENSION [None]
  - MYOCARDIAL INFARCTION [None]
